FAERS Safety Report 5706865-5 (Version None)
Quarter: 2008Q2

REPORT INFORMATION
  Report Type: 
  Country: None (occurrence: None)
  Receive Date: 20080416
  Receipt Date: 20080404
  Transmission Date: 20081010
  Serious: Yes (Death, Other)
  Sender: FDA-Public Use
  Company Number: TR-ELI_LILLY_AND_COMPANY-TR200804001350

PATIENT
  Sex: Female

DRUGS (1)
  1. HUMULIN N [Suspect]
     Route: 058

REACTIONS (1)
  - RESPIRATORY FAILURE [None]
